FAERS Safety Report 25001894 (Version 1)
Quarter: 2025Q1

REPORT INFORMATION
  Report Type: Spontaneous
  Country: US (occurrence: US)
  Receive Date: 20250224
  Receipt Date: 20250224
  Transmission Date: 20250408
  Serious: Yes (Hospitalization, Other)
  Sender: SANOFI AVENTIS
  Company Number: US-SA-2025SA052739

PATIENT
  Age: 60 Year
  Sex: Female

DRUGS (1)
  1. DUPIXENT [Suspect]
     Active Substance: DUPILUMAB
     Indication: Dermatitis artefacta
     Dosage: 300 MG, QW
     Route: 058
     Dates: start: 202305

REACTIONS (9)
  - Influenza [Unknown]
  - Ear infection [Unknown]
  - Eye infection [Unknown]
  - Pharyngitis [Unknown]
  - Cardiac failure congestive [Unknown]
  - Dermatitis artefacta [Unknown]
  - Condition aggravated [Unknown]
  - Chronic obstructive pulmonary disease [Unknown]
  - Product use in unapproved indication [Unknown]

NARRATIVE: CASE EVENT DATE: 20230501
